FAERS Safety Report 23085230 (Version 1)
Quarter: 2023Q4

REPORT INFORMATION
  Report Type: Spontaneous
  Country: US (occurrence: None)
  Receive Date: 20231019
  Receipt Date: 20231019
  Transmission Date: 20240110
  Serious: No
  Sender: FDA-Public Use
  Company Number: None

PATIENT
  Age: 87 Year
  Sex: Female
  Weight: 54.43 kg

DRUGS (2)
  1. ORENCIA [Suspect]
     Active Substance: ABATACEPT
     Indication: Rheumatoid arthritis
     Dosage: OTHER FREQUENCY : OVER 1HR AT WK0,2,;?
     Route: 042
     Dates: start: 202304
  2. ORENCIA [Suspect]
     Active Substance: ABATACEPT
     Indication: Senile osteoporosis

REACTIONS (1)
  - Pneumonia [None]
